FAERS Safety Report 18472047 (Version 1)
Quarter: 2020Q4

REPORT INFORMATION
  Report Type: Spontaneous
  Country: CA (occurrence: CA)
  Receive Date: 20201106
  Receipt Date: 20201106
  Transmission Date: 20210114
  Serious: Yes (Other)
  Sender: FDA-Public Use
  Company Number: CA-ORION CORPORATION ORION PHARMA-20_00011600

PATIENT
  Age: 45 Year
  Sex: Female

DRUGS (2)
  1. FOLIC ACID. [Concomitant]
     Active Substance: FOLIC ACID
     Dosage: 5 MG, DAILY (EXCEPT METHOTREXATE DAYS)
     Route: 048
  2. METHOTREXATE (TRADE NAME UNKNOWN) [Suspect]
     Active Substance: METHOTREXATE
     Indication: CUTANEOUS LUPUS ERYTHEMATOSUS
     Dosage: 10 MG AM AND 10 MG PM ON FRIDAYS
     Route: 065
     Dates: start: 20200306, end: 202005

REACTIONS (13)
  - Alopecia [Unknown]
  - Fatigue [Unknown]
  - Double stranded DNA antibody positive [Unknown]
  - Nausea [Unknown]
  - Acute cutaneous lupus erythematosus [Recovering/Resolving]
  - Musculoskeletal pain [Recovered/Resolved]
  - Product use in unapproved indication [Unknown]
  - Decreased appetite [Unknown]
  - Product use issue [Unknown]
  - Photosensitivity reaction [Unknown]
  - Musculoskeletal stiffness [Unknown]
  - Joint stiffness [Unknown]
  - Proteinuria [Unknown]

NARRATIVE: CASE EVENT DATE: 2020
